FAERS Safety Report 12926616 (Version 1)
Quarter: 2016Q4

REPORT INFORMATION
  Report Type: Spontaneous
  Country: IL (occurrence: IL)
  Receive Date: 20161109
  Receipt Date: 20161109
  Transmission Date: 20170207
  Serious: Yes (Hospitalization, Other)
  Sender: FDA-Public Use
  Company Number: IL-TEVA-710015ACC

PATIENT
  Age: 57 Year
  Sex: Female

DRUGS (1)
  1. TERBINAFINE TEVA 250 MG [Suspect]
     Active Substance: TERBINAFINE
     Indication: ONYCHOMYCOSIS
     Dosage: THE PATIENT DID NOT REMEMBERED THE DOSING REGIMEN
     Route: 048
     Dates: start: 201605, end: 201606

REACTIONS (9)
  - Pain [Recovered/Resolved]
  - Feeling abnormal [Not Recovered/Not Resolved]
  - Blister [Recovering/Resolving]
  - Erythema [Recovering/Resolving]
  - Dermatitis allergic [Recovering/Resolving]
  - Nail disorder [Not Recovered/Not Resolved]
  - Skin lesion [Recovering/Resolving]
  - Skin disorder [Not Recovered/Not Resolved]
  - Malaise [Recovering/Resolving]

NARRATIVE: CASE EVENT DATE: 2016
